FAERS Safety Report 11648209 (Version 1)
Quarter: 2015Q4

REPORT INFORMATION
  Report Type: Spontaneous
  Country: JP (occurrence: JP)
  Receive Date: 20151021
  Receipt Date: 20151021
  Transmission Date: 20160304
  Serious: Yes (Death, Hospitalization, Other)
  Sender: FDA-Public Use
  Company Number: JP-SA-2014SA095171

PATIENT
  Age: 80 Year
  Sex: Male
  Weight: 62 kg

DRUGS (4)
  1. RIVAROXABAN [Suspect]
     Active Substance: RIVAROXABAN
     Indication: ATRIAL FIBRILLATION
     Route: 048
  2. ASPIRIN. [Suspect]
     Active Substance: ASPIRIN
     Indication: ATRIAL FIBRILLATION
     Route: 048
  3. VALSARTAN. [Concomitant]
     Active Substance: VALSARTAN
  4. CLOPIDOGREL BISULFATE. [Suspect]
     Active Substance: CLOPIDOGREL BISULFATE
     Indication: ATRIAL FIBRILLATION
     Route: 065

REACTIONS (11)
  - Cerebral haemorrhage [Unknown]
  - Computerised tomogram abnormal [Unknown]
  - Acute respiratory failure [Unknown]
  - Condition aggravated [Fatal]
  - Altered state of consciousness [Unknown]
  - Pupils unequal [Unknown]
  - Brain stem syndrome [Unknown]
  - Brain herniation [Fatal]
  - Nuclear magnetic resonance imaging abnormal [Unknown]
  - Pupillary reflex impaired [Unknown]
  - Hemiplegia [Unknown]
